FAERS Safety Report 24769783 (Version 1)
Quarter: 2024Q4

REPORT INFORMATION
  Report Type: Report from Study
  Country: BG (occurrence: BG)
  Receive Date: 20241224
  Receipt Date: 20241224
  Transmission Date: 20250114
  Serious: Yes (Death, Other)
  Sender: ABBVIE
  Company Number: BG-ABBVIE-6061607

PATIENT
  Age: 76 Year
  Sex: Male

DRUGS (1)
  1. RINVOQ [Suspect]
     Active Substance: UPADACITINIB
     Indication: Rheumatoid arthritis
     Dosage: 1 TABLET
     Route: 048
     Dates: start: 202208

REACTIONS (1)
  - Sudden death [Fatal]
